FAERS Safety Report 13747587 (Version 16)
Quarter: 2024Q4

REPORT INFORMATION
  Report Type: Report from Study
  Country: FR (occurrence: FR)
  Receive Date: 20170712
  Receipt Date: 20241105
  Transmission Date: 20250114
  Serious: Yes (Life-Threatening, Hospitalization, Congenital Anomaly, Other)
  Sender: ABBVIE
  Company Number: FR-ABBVIE-17P-056-2032265-00

PATIENT
  Sex: Female

DRUGS (8)
  1. NORVIR [Suspect]
     Active Substance: RITONAVIR
     Indication: Maternal exposure timing unspecified
     Route: 064
     Dates: start: 20160501, end: 20170129
  2. KIVEXA [Suspect]
     Active Substance: ABACAVIR SULFATE\LAMIVUDINE
     Indication: Maternal exposure timing unspecified
     Route: 064
  3. REYATAZ [Suspect]
     Active Substance: ATAZANAVIR SULFATE
     Indication: Maternal exposure timing unspecified
     Route: 064
     Dates: start: 201605, end: 20170129
  4. PREZISTA [Suspect]
     Active Substance: DARUNAVIR ETHANOLATE
     Indication: Maternal exposure timing unspecified
     Route: 064
     Dates: start: 201605, end: 20170129
  5. PREZISTA [Suspect]
     Active Substance: DARUNAVIR ETHANOLATE
     Indication: Maternal exposure timing unspecified
     Route: 064
  6. EPZICOM [Suspect]
     Active Substance: ABACAVIR SULFATE\LAMIVUDINE
     Indication: Maternal exposure timing unspecified
     Route: 064
     Dates: start: 201605, end: 20170129
  7. NEVIRAPINE [Suspect]
     Active Substance: NEVIRAPINE
     Indication: Maternal exposure timing unspecified
     Route: 064
  8. VIRAMUNE [Suspect]
     Active Substance: NEVIRAPINE
     Indication: Maternal exposure timing unspecified
     Route: 064
     Dates: start: 2017, end: 201702

REACTIONS (15)
  - Eosinophilia [Unknown]
  - Foetal growth restriction [Recovering/Resolving]
  - Supernumerary nipple [Recovered/Resolved]
  - Congenital naevus [Not Recovered/Not Resolved]
  - Low set ears [Unknown]
  - Anomaly of external ear congenital [Unknown]
  - Left ventricular dilatation [Unknown]
  - Dermatitis exfoliative generalised [Not Recovered/Not Resolved]
  - Acoustic stimulation tests abnormal [Unknown]
  - Supernumerary nipple [Unknown]
  - Foetal exposure during pregnancy [Unknown]
  - Breast disorder [Unknown]
  - Low birth weight baby [Unknown]
  - Supernumerary nipple [Unknown]
  - Erythema [Unknown]

NARRATIVE: CASE EVENT DATE: 20170129
